FAERS Safety Report 10050460 (Version 2)
Quarter: 2014Q2

REPORT INFORMATION
  Report Type: Spontaneous
  Country: ES (occurrence: ES)
  Receive Date: 20140401
  Receipt Date: 20140403
  Transmission Date: 20141212
  Serious: Yes (Other)
  Sender: FDA-Public Use
  Company Number: ES-GLAXOSMITHKLINE-B0981768A

PATIENT
  Age: 36 Year
  Sex: Female

DRUGS (5)
  1. BENLYSTA [Suspect]
     Indication: SYSTEMIC LUPUS ERYTHEMATOSUS
     Route: 030
     Dates: start: 20131120
  2. CORTICOIDS [Concomitant]
  3. MYCOPHENOLATE [Concomitant]
     Indication: IMMUNOSUPPRESSION
  4. TACROLIMUS [Concomitant]
     Indication: IMMUNOSUPPRESSION
  5. PREDNISONE [Concomitant]

REACTIONS (3)
  - Polyarthritis [Recovered/Resolved]
  - Type IV hypersensitivity reaction [Recovered/Resolved]
  - Arthropathy [Recovered/Resolved]
